FAERS Safety Report 26161624 (Version 2)
Quarter: 2025Q4

REPORT INFORMATION
  Report Type: Report from Study
  Country: US (occurrence: US)
  Receive Date: 20251216
  Receipt Date: 20251219
  Transmission Date: 20260117
  Serious: No
  Sender: SANDOZ
  Company Number: US-SANDOZ-SDZ2025US058477

PATIENT
  Age: 16 Year
  Sex: Male

DRUGS (4)
  1. OMNITROPE [Suspect]
     Active Substance: SOMATROPIN
     Dosage: 2.8 MG, QD (OMNITROPE 10 MG/1.5 ML SOLUTION FOR INJECTION IN CARTRIDGE)
     Route: 058
  2. OMNITROPE [Suspect]
     Active Substance: SOMATROPIN
     Dosage: 2.8 MG, QD (OMNITROPE 10 MG/1.5 ML SOLUTION FOR INJECTION IN CARTRIDGE)
     Route: 058
  3. OMNITROPE [Suspect]
     Active Substance: SOMATROPIN
     Indication: Hypopituitarism
     Dosage: 0.44 ML, QD (STRENGTH 5 MG/ML)
     Route: 058
     Dates: start: 20250809
  4. OMNITROPE [Suspect]
     Active Substance: SOMATROPIN
     Indication: Hypopituitarism
     Dosage: 0.44 ML, QD (STRENGTH 5 MG/ML)
     Route: 058
     Dates: start: 20250809

REACTIONS (4)
  - Drug administered in wrong device [Unknown]
  - Circumstance or information capable of leading to medication error [Unknown]
  - Product administered at inappropriate site [Unknown]
  - Device mechanical issue [Unknown]

NARRATIVE: CASE EVENT DATE: 20250801
